FAERS Safety Report 23749270 (Version 6)
Quarter: 2024Q3

REPORT INFORMATION
  Report Type: Spontaneous
  Country: US (occurrence: US)
  Receive Date: 20240416
  Receipt Date: 20240809
  Transmission Date: 20241017
  Serious: Yes (Other)
  Sender: BRISTOL MYERS SQUIBB
  Company Number: US-BRISTOL-MYERS SQUIBB COMPANY-2024-059345

PATIENT
  Age: 67 Year
  Sex: Male

DRUGS (1)
  1. POMALYST [Suspect]
     Active Substance: POMALIDOMIDE
     Indication: Plasma cell myeloma
     Dosage: FREQUENCY: QD
     Route: 048

REACTIONS (13)
  - Upper respiratory tract infection [Unknown]
  - Full blood count abnormal [Unknown]
  - Arthralgia [Unknown]
  - Product dose omission issue [Unknown]
  - Dyspnoea [Unknown]
  - Joint swelling [Unknown]
  - Nephritis [Unknown]
  - Diarrhoea [Unknown]
  - Blood urine present [Unknown]
  - Contusion [Unknown]
  - Joint stiffness [Unknown]
  - Neuropathy peripheral [Unknown]
  - Fatigue [Unknown]

NARRATIVE: CASE EVENT DATE: 20240701
